FAERS Safety Report 6607534-X (Version None)
Quarter: 2010Q1

REPORT INFORMATION
  Report Type: 
  Country: None (occurrence: None)
  Receive Date: 20100301
  Receipt Date: 20100219
  Transmission Date: 20100710
  Serious: Yes (Hospitalization)
  Sender: FDA-Public Use
  Company Number: PHHY2009BR43784

PATIENT
  Sex: Female
  Weight: 65 kg

DRUGS (2)
  1. TRILEPTAL [Suspect]
     Indication: CONVULSION
     Dosage: 1 TABLET IN THE MORNING AND 1.5 TABLET AT NIGHT
     Route: 048
     Dates: start: 20070101
  2. TRILEPTAL [Suspect]
     Dosage: 0.5 TABLET IN THE MORNING AND 1.5 TABLET AT NIGHT
     Route: 048

REACTIONS (4)
  - BREAST FEEDING [None]
  - CAESAREAN SECTION [None]
  - DRUG EXPOSURE DURING PREGNANCY [None]
  - NORMAL NEWBORN [None]
